FAERS Safety Report 21556979 (Version 1)
Quarter: 2022Q4

REPORT INFORMATION
  Report Type: Spontaneous
  Country: ES (occurrence: ES)
  Receive Date: 20221104
  Receipt Date: 20221104
  Transmission Date: 20230113
  Serious: Yes (Other)
  Sender: FDA-Public Use
  Company Number: ES-BoehringerIngelheim-2022-BI-200706

PATIENT
  Age: 61 Year
  Sex: Female

DRUGS (2)
  1. PRADAXA [Suspect]
     Active Substance: DABIGATRAN ETEXILATE MESYLATE
     Indication: Atrial fibrillation
     Dosage: PRADAXA IN THE MORNING AND AT NIGHT
  2. PRADAXA [Suspect]
     Active Substance: DABIGATRAN ETEXILATE MESYLATE
     Dosage: DUE TO A MISTAKE SHE TOOK TWO CAPSULES OF PRADAXA AT NIGHT INSTEAD OF ONE.
     Dates: start: 20221028, end: 20221028

REACTIONS (6)
  - Osteomyelitis [Unknown]
  - Fall [Recovered/Resolved]
  - Tibia fracture [Unknown]
  - Fibula fracture [Unknown]
  - Extra dose administered [Recovered/Resolved]
  - Phlebitis [Unknown]

NARRATIVE: CASE EVENT DATE: 20220101
